FAERS Safety Report 5017621-8 (Version None)
Quarter: 2006Q2

REPORT INFORMATION
  Report Type: 
  Country: None (occurrence: None)
  Receive Date: 20060604
  Receipt Date: 20060526
  Transmission Date: 20061013
  Serious: Yes (Hospitalization, Other)
  Sender: FDA-Public Use
  Company Number: CA-ABBOTT-06P-028-0334488-00

PATIENT
  Age: 50 Year
  Sex: Male

DRUGS (24)
  1. LOPINAVIR/RITONAVIR [Suspect]
     Indication: HIV INFECTION
     Dosage: 133MG/33MG, 3 CAPSULES TWICE DAILY
  2. LOPINAVIR/RITONAVIR [Suspect]
     Dosage: 133MG/33MG, 3 CAPSULES TWICE DAILY
  3. CARBAMAZEPINE [Interacting]
     Indication: COMPLEX PARTIAL SEIZURES
  4. CARBAMAZEPINE [Interacting]
  5. CARBAMAZEPINE [Interacting]
  6. CARBAMAZEPINE [Interacting]
  7. CARBAMAZEPINE [Interacting]
     Dosage: 400 MG BID WAS DECREASED BY 100MG WEEKLY
  8. NELFINAVIR [Interacting]
     Indication: HIV INFECTION
  9. TENOFOVIR [Concomitant]
     Indication: HIV INFECTION
  10. TENOFOVIR [Concomitant]
  11. LAMIVUDINE [Concomitant]
     Indication: HIV INFECTION
  12. LAMIVUDINE [Concomitant]
  13. CITALOPRAM HYDROBROMIDE [Concomitant]
     Indication: DRUG USE FOR UNKNOWN INDICATION
  14. DAPSONE [Concomitant]
     Indication: DRUG USE FOR UNKNOWN INDICATION
  15. DAPSONE [Concomitant]
     Indication: ANTIBIOTIC PROPHYLAXIS
  16. TOPIRAMATE [Concomitant]
     Indication: DRUG USE FOR UNKNOWN INDICATION
  17. TOPIRAMATE [Concomitant]
  18. TOPIRAMATE [Concomitant]
  19. TOPIRAMATE [Concomitant]
  20. TOPIRAMATE [Concomitant]
  21. TOPIRAMATE [Concomitant]
  22. TOPIRAMATE [Concomitant]
  23. DEXAMETHASONE TAB [Concomitant]
     Indication: IMMUNE RECONSTITUTION SYNDROME
  24. FLUCONAZOLE [Concomitant]
     Indication: ORAL CANDIDIASIS
     Dosage: FOR SEVEN DAYS

REACTIONS (4)
  - DRUG INTERACTION [None]
  - DRUG TOXICITY [None]
  - RASH MACULO-PAPULAR [None]
  - RASH PRURITIC [None]
